FAERS Safety Report 23337598 (Version 1)
Quarter: 2023Q4

REPORT INFORMATION
  Report Type: Spontaneous
  Country: US (occurrence: US)
  Receive Date: 20231226
  Receipt Date: 20231226
  Transmission Date: 20240110
  Serious: No
  Sender: FDA-Public Use
  Company Number: US-002147023-NVSC2023US273392

PATIENT
  Sex: Male
  Weight: 82 kg

DRUGS (1)
  1. KYMRIAH [Suspect]
     Active Substance: TISAGENLECLEUCEL
     Indication: Acute lymphocytic leukaemia
     Dosage: 1.7E8 CAR-POSITIVE VIABLE T-CELLS
     Route: 042
     Dates: start: 20231116

REACTIONS (1)
  - Next-generation sequencing [Unknown]
